FAERS Safety Report 14380354 (Version 2)
Quarter: 2018Q1

REPORT INFORMATION
  Report Type: Spontaneous
  Country: FR (occurrence: FR)
  Receive Date: 20180112
  Receipt Date: 20180223
  Transmission Date: 20180509
  Serious: Yes (Other)
  Sender: FDA-Public Use
  Company Number: FR-JNJFOC-20180111334

PATIENT
  Age: 83 Year
  Sex: Female

DRUGS (1)
  1. IMBRUVICA [Suspect]
     Active Substance: IBRUTINIB
     Indication: MANTLE CELL LYMPHOMA
     Route: 048
     Dates: start: 20170814

REACTIONS (5)
  - Atrial fibrillation [Unknown]
  - Myocardial infarction [Unknown]
  - Pleural effusion [Unknown]
  - Deep vein thrombosis [Unknown]
  - Cardiac failure [Unknown]

NARRATIVE: CASE EVENT DATE: 20171231
